FAERS Safety Report 9359999 (Version 2)
Quarter: 2013Q2

REPORT INFORMATION
  Report Type: Spontaneous
  Country: JP (occurrence: JP)
  Receive Date: 20130621
  Receipt Date: 20130626
  Transmission Date: 20140414
  Serious: Yes (Hospitalization)
  Sender: FDA-Public Use
  Company Number: PHHY2013JP063621

PATIENT
  Age: 74 Year
  Sex: Male

DRUGS (1)
  1. NEORAL [Suspect]
     Indication: INTERSTITIAL LUNG DISEASE
     Dosage: 100 MG, DAILY
     Route: 048
     Dates: start: 20130606

REACTIONS (3)
  - Acidosis [Unknown]
  - Blood potassium increased [Unknown]
  - Blood creatinine increased [Recovered/Resolved]
